FAERS Safety Report 10027673 (Version 2)
Quarter: 2014Q2

REPORT INFORMATION
  Report Type: Spontaneous
  Country: US (occurrence: US)
  Receive Date: 20140321
  Receipt Date: 20140417
  Transmission Date: 20141212
  Serious: No
  Sender: FDA-Public Use
  Company Number: US-009507513-1403USA005191

PATIENT
  Sex: Female

DRUGS (3)
  1. MAXALT [Suspect]
     Indication: MIGRAINE
     Dosage: UNK
     Route: 048
     Dates: start: 200901
  2. SUMATRIPTAN [Suspect]
     Indication: MIGRAINE
  3. NARATRIPTAN HYDROCHLORIDE [Suspect]
     Indication: MIGRAINE

REACTIONS (1)
  - Drug ineffective [Unknown]
